FAERS Safety Report 5079342-5 (Version None)
Quarter: 2006Q3

REPORT INFORMATION
  Report Type: 
  Country: None (occurrence: None)
  Receive Date: 20060809
  Receipt Date: 20060729
  Transmission Date: 20061208
  Serious: Yes (Hospitalization)
  Sender: FDA-Public Use
  Company Number: 2006074196

PATIENT

DRUGS (1)
  1. LYRICA [Suspect]
     Indication: ANALGESIC EFFECT
     Dosage: 150 MG (50 MG, 3 IN 1D), UNKNOWN
     Dates: start: 20060204, end: 20060511

REACTIONS (4)
  - RASH [None]
  - SKIN DISORDER [None]
  - SKIN LESION [None]
  - WEIGHT INCREASED [None]
